FAERS Safety Report 9462221 (Version 1)
Quarter: 2013Q3

REPORT INFORMATION
  Report Type: Spontaneous
  Country: CA (occurrence: CA)
  Receive Date: 20130816
  Receipt Date: 20130816
  Transmission Date: 20140515
  Serious: Yes (Hospitalization)
  Sender: FDA-Public Use
  Company Number: CA-ELI_LILLY_AND_COMPANY-CA201308002532

PATIENT
  Age: 35 Year
  Sex: Male

DRUGS (6)
  1. CYMBALTA [Suspect]
     Indication: MAJOR DEPRESSION
     Dosage: 60 MG, UNKNOWN
     Route: 065
     Dates: start: 201306
  2. ABILIFY [Interacting]
     Indication: PSYCHOTIC DISORDER
     Dosage: 2 MG, UNK
     Dates: start: 20130803, end: 20130806
  3. CLONAZEPAM [Concomitant]
     Dosage: 1.5 MG, UNK
  4. PANTOLOC                           /01263204/ [Concomitant]
     Dosage: 40 MG, UNK
  5. SEROQUEL [Concomitant]
     Dosage: 200- 300 MG, UNK
  6. LYRICA [Concomitant]
     Dosage: 600 MG, UNK

REACTIONS (4)
  - Balance disorder [Recovered/Resolved]
  - Jaw disorder [Recovered/Resolved]
  - Akathisia [Recovered/Resolved]
  - Drug interaction [Recovered/Resolved]
